FAERS Safety Report 6727780-4 (Version None)
Quarter: 2010Q2

REPORT INFORMATION
  Report Type: 
  Country: None (occurrence: None)
  Receive Date: 20100514
  Receipt Date: 20100514
  Transmission Date: 20101027
  Serious: Yes (Other)
  Sender: FDA-Public Use
  Company Number: None

PATIENT
  Sex: Female
  Weight: 52.1637 kg

DRUGS (2)
  1. TOPAMAX [Suspect]
     Dosage: PO
  2. TOPAMAX [Suspect]
     Dosage: PO

REACTIONS (4)
  - CONDITION AGGRAVATED [None]
  - INCORRECT DOSE ADMINISTERED [None]
  - MIGRAINE [None]
  - PRODUCT SUBSTITUTION ISSUE [None]
